FAERS Safety Report 23836300 (Version 1)
Quarter: 2024Q2

REPORT INFORMATION
  Report Type: Spontaneous
  Country: DE (occurrence: DE)
  Receive Date: 20240509
  Receipt Date: 20240509
  Transmission Date: 20240716
  Serious: Yes (Hospitalization)
  Sender: FDA-Public Use
  Company Number: DE-BoehringerIngelheim-2020-BI-064414

PATIENT
  Age: 79 Year
  Sex: Female
  Weight: 60 kg

DRUGS (18)
  1. DOCETAXEL [Suspect]
     Active Substance: DOCETAXEL\DOCETAXEL ANHYDROUS
     Indication: Lung adenocarcinoma
     Dosage: DAILY DOSE: 75 MG/M2 LIQUID BODY SURFACE AREA
     Route: 042
     Dates: start: 20201030, end: 20201030
  2. NINTEDANIB [Suspect]
     Active Substance: NINTEDANIB
     Indication: Lung adenocarcinoma
     Dosage: 200 MG BID
     Route: 048
     Dates: start: 20201031, end: 20201105
  3. PEGFILGRASTIM [Concomitant]
     Active Substance: PEGFILGRASTIM
     Indication: Product used for unknown indication
  4. CALCICARE [Concomitant]
     Indication: Product used for unknown indication
  5. ACETYLCYSTEINE [Concomitant]
     Active Substance: ACETYLCYSTEINE
     Indication: Product used for unknown indication
  6. DENOSUMAB [Concomitant]
     Active Substance: DENOSUMAB
     Indication: Product used for unknown indication
  7. AMLODIPINE BESILATE, AZILSARTAN [Concomitant]
     Indication: Product used for unknown indication
  8. METOPROLOL SUCCINATE [Concomitant]
     Active Substance: METOPROLOL SUCCINATE
     Indication: Product used for unknown indication
  9. CLEMASTINE [Concomitant]
     Active Substance: CLEMASTINE
     Indication: Product used for unknown indication
  10. DEXAMETHASONE [Concomitant]
     Active Substance: DEXAMETHASONE
     Indication: Product used for unknown indication
  11. KALINOR [Concomitant]
     Indication: Product used for unknown indication
  12. LOPERAMIDE, NEOMYCIN [Concomitant]
     Indication: Product used for unknown indication
  13. LOTEPREDNOL, MOXIFLOXACIN [Concomitant]
     Indication: Product used for unknown indication
  14. METAMIZOLE [Concomitant]
     Active Substance: METAMIZOLE
     Indication: Product used for unknown indication
  15. PALONOSETRON, NETUPITANT [Concomitant]
     Indication: Product used for unknown indication
  16. RANITIDINE [Concomitant]
     Active Substance: RANITIDINE
     Indication: Product used for unknown indication
  17. DIMENHYDRINATE [Concomitant]
     Active Substance: DIMENHYDRINATE
     Indication: Product used for unknown indication
  18. ZOPICLONE [Concomitant]
     Active Substance: ZOPICLONE
     Indication: Product used for unknown indication

REACTIONS (8)
  - Decreased appetite [Recovered/Resolved]
  - Vomiting [Recovered/Resolved]
  - Diarrhoea [Recovered/Resolved]
  - Neutrophil count decreased [Not Recovered/Not Resolved]
  - Haematotoxicity [Not Recovered/Not Resolved]
  - White blood cell count decreased [Recovered/Resolved]
  - Stomatitis [Unknown]
  - Hypokalaemia [Recovered/Resolved]

NARRATIVE: CASE EVENT DATE: 20201031
